FAERS Safety Report 6655226-3 (Version None)
Quarter: 2010Q1

REPORT INFORMATION
  Report Type: 
  Country: None (occurrence: None)
  Receive Date: 20100329
  Receipt Date: 20100319
  Transmission Date: 20100710
  Serious: Yes (Hospitalization)
  Sender: FDA-Public Use
  Company Number: CO-BRISTOL-MYERS SQUIBB COMPANY-14753123

PATIENT
  Age: 60 Year
  Sex: Male
  Weight: 84 kg

DRUGS (7)
  1. AVAPRO [Suspect]
     Indication: HYPERTENSION
     Route: 048
     Dates: start: 20090228
  2. MINOXIDIL [Suspect]
     Indication: HYPERTENSION
     Dosage: FILM COATED TABLET
     Route: 048
     Dates: start: 20090601
  3. AMLODIPINE BESYLATE [Suspect]
     Indication: HYPERTENSION
     Dosage: TABS
     Route: 048
     Dates: start: 20090701
  4. SUNITINIB MALATE [Concomitant]
     Indication: RENAL CELL CARCINOMA
     Route: 048
     Dates: start: 20060523, end: 20090614
  5. LEVOTHYROXINE SODIUM [Concomitant]
     Indication: HYPOTHYROIDISM
     Route: 048
     Dates: start: 20030101
  6. METOPROLOL [Concomitant]
     Route: 048
     Dates: start: 20090301
  7. ALLOPURINOL [Concomitant]
     Indication: HYPERURICAEMIA
     Route: 048
     Dates: start: 20071227

REACTIONS (1)
  - HYPONATRAEMIA [None]
